FAERS Safety Report 9770700 (Version 3)
Quarter: 2014Q1

REPORT INFORMATION
  Report Type: Spontaneous
  Country: US (occurrence: US)
  Receive Date: 20131218
  Receipt Date: 20140103
  Transmission Date: 20141002
  Serious: Yes (Hospitalization)
  Sender: FDA-Public Use
  Company Number: US-PFIZER INC-2013362069

PATIENT
  Age: 48 Year
  Sex: Male
  Weight: 94.79 kg

DRUGS (4)
  1. TORISEL [Suspect]
     Indication: RENAL CELL CARCINOMA
     Dosage: 25 MG, WEEKLY
     Route: 042
     Dates: start: 20131202
  2. TORISEL [Suspect]
     Indication: METASTASES TO BONE
     Dosage: 25 MG, WEEKLY
     Route: 042
     Dates: start: 20131202
  3. DOCUSATE SODIUM [Concomitant]
     Indication: CONSTIPATION
     Dosage: UNK
  4. ASCORBIC ACID [Concomitant]
     Dosage: 500 MG, 2X/DAY
     Route: 048

REACTIONS (1)
  - Pleural effusion [Recovered/Resolved]
